FAERS Safety Report 8209716-2 (Version None)
Quarter: 2012Q1

REPORT INFORMATION
  Report Type: 
  Country: None (occurrence: None)
  Receive Date: 20120314
  Receipt Date: 20120301
  Transmission Date: 20120608
  Serious: Yes (Hospitalization, Other)
  Sender: FDA-Public Use
  Company Number: CN-MYLANLABS-2012S1004867

PATIENT
  Sex: Female

DRUGS (1)
  1. METHIMAZOLE [Suspect]
     Indication: BASEDOW'S DISEASE
     Dosage: 20 MG/DAY
     Route: 048
     Dates: start: 20090101

REACTIONS (2)
  - THYROTOXIC CRISIS [None]
  - PANCREATITIS ACUTE [None]
